FAERS Safety Report 8919827 (Version 3)
Quarter: 2014Q2

REPORT INFORMATION
  Report Type: Spontaneous
  Country: US (occurrence: US)
  Receive Date: 20121121
  Receipt Date: 20140506
  Transmission Date: 20141212
  Serious: Yes (Hospitalization)
  Sender: FDA-Public Use
  Company Number: US-BAYER-2012-119988

PATIENT
  Age: 17 Year
  Sex: Female

DRUGS (11)
  1. YAZ [Suspect]
     Dosage: UNK
     Dates: start: 20070801, end: 200806
  2. SULFAMETHOXAZOLE [Concomitant]
     Dosage: UNK
     Route: 048
     Dates: start: 20071015
  3. CIPROFLOXACIN [Concomitant]
     Dosage: 500 MG, UNK
     Route: 048
  4. SPIRIVA [Concomitant]
     Dosage: UNK
     Route: 045
     Dates: start: 20071114
  5. AVANDIA [Concomitant]
     Dosage: 4 MG, UNK
     Route: 048
     Dates: start: 20071126
  6. ADVAIR [Concomitant]
     Dosage: 250 -50
     Route: 045
     Dates: start: 20071126
  7. SIMVASTATIN [Concomitant]
     Dosage: 20 MG, UNK
     Route: 048
     Dates: start: 20071126
  8. ONDANSETRON [Concomitant]
     Dosage: UNK
     Route: 048
     Dates: start: 20071212
  9. CEFUROXIME [Concomitant]
     Dosage: UNK
     Route: 048
     Dates: start: 20080109
  10. PROMETHAZINE [Concomitant]
     Dosage: 25 MG, UNK
     Route: 048
  11. DICYCLOMINE [Concomitant]
     Dosage: 20 MG, UNK
     Route: 048
     Dates: start: 20080109

REACTIONS (8)
  - Cholecystectomy [None]
  - Injury [None]
  - Pain [None]
  - General physical health deterioration [None]
  - Anxiety [None]
  - Anhedonia [None]
  - Emotional distress [None]
  - Pain [None]
